FAERS Safety Report 9386816 (Version 1)
Quarter: 2013Q3

REPORT INFORMATION
  Report Type: Spontaneous
  Country: GB (occurrence: None)
  Receive Date: 20130702
  Receipt Date: 20130702
  Transmission Date: 20140515
  Serious: Yes (Hospitalization)
  Sender: FDA-Public Use
  Company Number: 2013P1010799

PATIENT
  Age: 63 Year
  Sex: Male

DRUGS (1)
  1. NAPROXEN [Suspect]
     Indication: SCIATICA

REACTIONS (1)
  - Drug reaction with eosinophilia and systemic symptoms [None]
